FAERS Safety Report 9645408 (Version 1)
Quarter: 2013Q4

REPORT INFORMATION
  Report Type: Spontaneous
  Country: US (occurrence: US)
  Receive Date: 20131025
  Receipt Date: 20131025
  Transmission Date: 20140711
  Serious: Yes (Hospitalization)
  Sender: FDA-Public Use
  Company Number: US-PFIZER INC-2013302299

PATIENT
  Age: 32 Year
  Sex: Female

DRUGS (14)
  1. IBUPROFEN [Suspect]
     Indication: MIGRAINE
     Route: 065
  2. TYLENOL [Suspect]
     Indication: PAIN
     Route: 065
  3. TYLENOL [Suspect]
     Indication: MIGRAINE
  4. DARVOCET [Suspect]
     Indication: PAIN
     Route: 065
  5. DARVOCET [Suspect]
     Indication: HEADACHE
     Route: 065
  6. EXCEDRIN MIGRAINE [Suspect]
     Indication: MIGRAINE
     Dosage: 1 DF, UNK
     Route: 065
     Dates: start: 2001
  7. EXCEDRIN EXTRA STRENGTH [Suspect]
     Indication: MYALGIA
     Dosage: 2 CAPLETS AS NECESSARY
     Route: 065
  8. EXCEDRIN EXTRA STRENGTH [Suspect]
     Indication: BACK PAIN
  9. EXCEDRIN EXTRA STRENGTH [Suspect]
     Indication: HEADACHE
  10. INSULIN [Suspect]
     Indication: DIABETES MELLITUS
     Dosage: PILL
     Route: 048
     Dates: start: 1997
  11. INSULIN [Suspect]
     Indication: DIABETES MELLITUS
     Dosage: UNK
  12. LEVEMIR [Concomitant]
     Indication: GESTATIONAL DIABETES
  13. METFORMIN [Concomitant]
     Indication: GESTATIONAL DIABETES
     Route: 065
  14. GLIMEPIRIDE [Concomitant]
     Indication: GESTATIONAL DIABETES
     Route: 065

REACTIONS (9)
  - Complication of pregnancy [Recovered/Resolved]
  - Diabetes mellitus inadequate control [Unknown]
  - Fibromyalgia [Unknown]
  - Blood disorder [Unknown]
  - Drug withdrawal syndrome [Unknown]
  - Crying [Unknown]
  - Migraine [Recovered/Resolved]
  - Blood pressure fluctuation [Unknown]
  - Headache [Unknown]
